FAERS Safety Report 8222613-1 (Version None)
Quarter: 2012Q1

REPORT INFORMATION
  Report Type: 
  Country: None (occurrence: None)
  Receive Date: 20120320
  Receipt Date: 20120316
  Transmission Date: 20120608
  Serious: Yes (Hospitalization, Other)
  Sender: FDA-Public Use
  Company Number: US-B.I. PHARMACEUTICALS,INC./RIDGEFIELD-2012-BP-05113BP

PATIENT
  Age: 101 Year
  Sex: Female

DRUGS (2)
  1. PRADAXA [Suspect]
     Indication: ATRIAL FIBRILLATION
     Dosage: 150 MG
     Route: 048
  2. AMIODARONE HYDROCHLORIDE [Concomitant]
     Indication: ATRIAL FIBRILLATION

REACTIONS (4)
  - ATRIAL FIBRILLATION [None]
  - HAEMATURIA [None]
  - THROMBIN TIME ABNORMAL [None]
  - INTERNATIONAL NORMALISED RATIO ABNORMAL [None]
